FAERS Safety Report 6664393-7 (Version None)
Quarter: 2010Q2

REPORT INFORMATION
  Report Type: 
  Country: None (occurrence: None)
  Receive Date: 20100401
  Receipt Date: 20100326
  Transmission Date: 20101027
  Serious: Yes (Hospitalization, Other)
  Sender: FDA-Public Use
  Company Number: GXKR2007DK04768

PATIENT
  Sex: Female
  Weight: 52 kg

DRUGS (5)
  1. BIOCLAVID (NGX) [Suspect]
     Indication: DISBACTERIOSIS
     Dosage: 3000 MG DAILY
     Route: 048
     Dates: start: 20070313, end: 20070315
  2. BIOCLAVID (NGX) [Suspect]
     Dosage: 1.5 DF, BID
     Dates: start: 20061110
  3. CALCIUM CARBONATE [Concomitant]
  4. FERRO DURETTER [Concomitant]
     Dosage: UNK, UNK
  5. PAMOL [Concomitant]
     Dosage: 1-2 G DAILY
     Dates: start: 20070327, end: 20070522

REACTIONS (6)
  - ALANINE AMINOTRANSFERASE INCREASED [None]
  - BLOOD ALKALINE PHOSPHATASE INCREASED [None]
  - DYSPHAGIA [None]
  - HEADACHE [None]
  - MALAISE [None]
  - PAIN [None]
